FAERS Safety Report 4772472-4 (Version None)
Quarter: 2005Q3

REPORT INFORMATION
  Report Type: 
  Country: None (occurrence: None)
  Receive Date: 20050916
  Receipt Date: 20050916
  Transmission Date: 20060218
  Serious: Yes (Hospitalization)
  Sender: FDA-Public Use
  Company Number: None

PATIENT
  Age: 54 Year
  Sex: Female
  Weight: 72 kg

DRUGS (3)
  1. GEMZAR [Suspect]
  2. OXALIPLATIN [Suspect]
  3. LAPATINIB [Suspect]

REACTIONS (3)
  - CATHETER SEPSIS [None]
  - NEUTROPENIA [None]
  - PYREXIA [None]
